FAERS Safety Report 6883541-7 (Version None)
Quarter: 2010Q3

REPORT INFORMATION
  Report Type: 
  Country: None (occurrence: None)
  Receive Date: 20100708
  Receipt Date: 20100217
  Transmission Date: 20110219
  Serious: Yes (Other)
  Sender: FDA-Public Use
  Company Number: 2010022127

PATIENT
  Age: 42 Year
  Sex: Male
  Weight: 88.4 kg

DRUGS (3)
  1. CHANTIX [Suspect]
     Indication: SMOKING CESSATION THERAPY
     Dosage: 0.5 MG, 1X/DAY, ORAL
     Route: 048
     Dates: start: 20100202, end: 20100204
  2. HYDROCODONE BITARTRATE [Concomitant]
  3. IBUPROFEN (BUPROFEN) [Concomitant]

REACTIONS (4)
  - CONFUSIONAL STATE [None]
  - DEPRESSION [None]
  - FEELING ABNORMAL [None]
  - MENTAL IMPAIRMENT [None]
